FAERS Safety Report 13393528 (Version 1)
Quarter: 2017Q1

REPORT INFORMATION
  Report Type: Spontaneous
  Country: US (occurrence: US)
  Receive Date: 20170331
  Receipt Date: 20170331
  Transmission Date: 20170429
  Serious: No
  Sender: FDA-Public Use
  Company Number: US-SEPTODONT-201603761

PATIENT

DRUGS (3)
  1. LIDOCAINE HYDROCHLORIDE 2% WITH EPINEPHRINE 1:100,000 INJECTION [Suspect]
     Active Substance: EPINEPHRINE\LIDOCAINE HYDROCHLORIDE
     Indication: LOCAL ANAESTHESIA
     Dosage: 2 CARPULES ADMINISTERED OF DRUG #1, DRUG #2 AND/OR DRUG #3
     Route: 004
     Dates: start: 20161120, end: 20161120
  2. LIDOCAINE HYDROCHLORIDE 2% WITH EPINEPHRINE 1:100,000 INJECTION [Suspect]
     Active Substance: EPINEPHRINE\LIDOCAINE HYDROCHLORIDE
     Indication: LOCAL ANAESTHESIA
     Dosage: 2 CARPULES ADMINISTERED OF DRUG #1, DRUG #2 AND/OR DRUG #3
     Route: 004
     Dates: start: 20161120, end: 20161120
  3. LIDOCAINE HYDROCHLORIDE 2% WITH EPINEPHRINE 1:100,000 INJECTION [Suspect]
     Active Substance: EPINEPHRINE\LIDOCAINE HYDROCHLORIDE
     Indication: LOCAL ANAESTHESIA
     Dosage: 2 CARPULES ADMINISTERED OF DRUG #1, DRUG #2 AND/OR DRUG #3
     Route: 004
     Dates: start: 20161120, end: 20161120

REACTIONS (1)
  - Drug ineffective [Unknown]

NARRATIVE: CASE EVENT DATE: 20161120
